FAERS Safety Report 5845917-6 (Version None)
Quarter: 2008Q3

REPORT INFORMATION
  Report Type: 
  Country: None (occurrence: None)
  Receive Date: 20080814
  Receipt Date: 20080806
  Transmission Date: 20090109
  Serious: Yes (Death, Hospitalization, Other)
  Sender: FDA-Public Use
  Company Number: US-ELI_LILLY_AND_COMPANY-US200808001111

PATIENT
  Age: 73 Year
  Sex: Female

DRUGS (1)
  1. HUMALOG [Suspect]

REACTIONS (9)
  - BLOOD PRESSURE DECREASED [None]
  - COLON CANCER [None]
  - DEATH [None]
  - GAIT DISTURBANCE [None]
  - HOSPITALISATION [None]
  - METASTASIS [None]
  - REGURGITATION [None]
  - RENAL FAILURE [None]
  - STOMACH DISCOMFORT [None]
